FAERS Safety Report 12603949 (Version 1)
Quarter: 2016Q3

REPORT INFORMATION
  Report Type: Spontaneous
  Country: US (occurrence: US)
  Receive Date: 20160728
  Receipt Date: 20160728
  Transmission Date: 20161109
  Serious: No
  Sender: FDA-Public Use
  Company Number: US-BAYER-2016-147254

PATIENT
  Sex: Female

DRUGS (2)
  1. ALKA-SELTZER HEARTBURN [Concomitant]
     Active Substance: ANHYDROUS CITRIC ACID\SODIUM BICARBONATE
     Indication: DYSPEPSIA
     Dosage: UNK
  2. ALEVE [Suspect]
     Active Substance: NAPROXEN SODIUM
     Indication: ARTHRALGIA
     Dosage: UNK

REACTIONS (1)
  - Therapeutic response unexpected [None]
